FAERS Safety Report 14313957 (Version 1)
Quarter: 2017Q4

REPORT INFORMATION
  Report Type: Spontaneous
  Country: IT (occurrence: IT)
  Receive Date: 20171221
  Receipt Date: 20171221
  Transmission Date: 20180321
  Serious: Yes (Other)
  Sender: FDA-Public Use
  Company Number: IT-MYLANLABS-2017M1077810

PATIENT
  Age: 2 Year
  Sex: Male

DRUGS (12)
  1. PROPOFOL. [Suspect]
     Active Substance: PROPOFOL
     Dosage: 0.93 MG/KG/H FOR 24 HOURS ON DAY 2
     Route: 041
  2. FENTANYL. [Suspect]
     Active Substance: FENTANYL
     Indication: MOVEMENT DISORDER
     Dosage: 0.65 UG/KG/H FOR 16 HRS ON DAY 4
     Route: 050
  3. MIDAZOLAM [Suspect]
     Active Substance: MIDAZOLAM HYDROCHLORIDE
     Dosage: 0.16 MG/KG/H FOR 24 HRS ON DAY 2
     Route: 041
  4. PROPOFOL. [Suspect]
     Active Substance: PROPOFOL
     Dosage: 5.38 MG/KG/H FOR 14 HOURS ON DAY 4
     Route: 041
  5. MIDAZOLAM [Suspect]
     Active Substance: MIDAZOLAM HYDROCHLORIDE
     Indication: SEDATION
     Dosage: 0.03 MG/KG/H FOR 10 HRS ON DAY 1
     Route: 041
  6. PROPOFOL. [Suspect]
     Active Substance: PROPOFOL
     Indication: SEDATION
     Dosage: 8 MG/KG/H FOR 4 HOURS ON DAY 1
     Route: 041
  7. PROPOFOL. [Suspect]
     Active Substance: PROPOFOL
     Dosage: 4 MG/KG/H FOR 24 HOURS ON DAY 3
     Route: 041
  8. FENTANYL. [Suspect]
     Active Substance: FENTANYL
     Indication: AGITATION
     Dosage: 0.95 UG/KG/H FOR 24 HRS ON DAY 3
     Route: 050
  9. HYDROXYZINE [Suspect]
     Active Substance: HYDROXYZINE HYDROCHLORIDE
     Dosage: 1 MG/KG/DAY ON DAY 4
     Route: 050
  10. HYDROXYZINE [Suspect]
     Active Substance: HYDROXYZINE HYDROCHLORIDE
     Indication: MAINTENANCE OF ANAESTHESIA
     Dosage: 2 MG/KG/DAY ON DAY 2 AND 3
     Route: 050
  11. MIDAZOLAM [Suspect]
     Active Substance: MIDAZOLAM HYDROCHLORIDE
     Dosage: 0.16 MG/KG/H FOR 16 HRS ON DAY 3
     Route: 041
  12. MIDAZOLAM [Suspect]
     Active Substance: MIDAZOLAM HYDROCHLORIDE
     Dosage: 0.17 MG/KG/H FOR 16 HRS ON DAY 4
     Route: 041

REACTIONS (8)
  - Dyskinesia [Recovered/Resolved]
  - Akinesia [Recovered/Resolved]
  - Mutism [Recovered/Resolved]
  - Automatism [Recovered/Resolved]
  - Postural tremor [Recovered/Resolved]
  - Cogwheel rigidity [Recovered/Resolved]
  - Oculogyric crisis [Recovered/Resolved]
  - Withdrawal syndrome [Recovered/Resolved]
